FAERS Safety Report 9942627 (Version 1)
Quarter: 2014Q1

REPORT INFORMATION
  Report Type: Report from Study
  Country: US (occurrence: US)
  Receive Date: 20140303
  Receipt Date: 20140303
  Transmission Date: 20141002
  Serious: No
  Sender: FDA-Public Use
  Company Number: US-ABBVIE-13P-163-1045481-00

PATIENT
  Age: 34 Year
  Sex: Male

DRUGS (4)
  1. HUMIRA [Suspect]
     Indication: CROHN^S DISEASE
     Dates: start: 20120929, end: 201212
  2. 6 MP [Concomitant]
     Indication: CROHN^S DISEASE
  3. NORCO [Concomitant]
     Indication: PAIN
     Dosage: 10/325 1-2 TABLETS EVERY 6 HOURS
  4. PROVENTIL [Concomitant]
     Indication: ASTHMA
     Dosage: USES MAYBE 1-5 TIMES PER YEAR

REACTIONS (2)
  - Therapy change [Not Recovered/Not Resolved]
  - Abscess [Not Recovered/Not Resolved]
